FAERS Safety Report 6796236-5 (Version None)
Quarter: 2010Q2

REPORT INFORMATION
  Report Type: 
  Country: None (occurrence: None)
  Receive Date: 20100624
  Receipt Date: 20100624
  Transmission Date: 20101027
  Serious: Yes (Hospitalization)
  Sender: FDA-Public Use
  Company Number: None

PATIENT
  Sex: Female
  Weight: 54.7 kg

DRUGS (2)
  1. DOCETAXEL [Suspect]
     Indication: NON-SMALL CELL LUNG CANCER
     Dosage: 75MG/M2, Q21 DAYS, IV
     Route: 042
     Dates: start: 20100415
  2. APRICOXIB/PLACEBO [Suspect]
     Indication: NON-SMALL CELL LUNG CANCER
     Dosage: 300MG, DAILY, PO
     Route: 048
     Dates: start: 20100415

REACTIONS (2)
  - BLOOD COUNT ABNORMAL [None]
  - PLEURAL EFFUSION [None]
